FAERS Safety Report 5630204-1 (Version None)
Quarter: 2008Q1

REPORT INFORMATION
  Report Type: 
  Country: None (occurrence: None)
  Receive Date: 20080219
  Receipt Date: 20080213
  Transmission Date: 20080703
  Serious: Yes (Hospitalization)
  Sender: FDA-Public Use
  Company Number: JP-BAYER-200810264BYL

PATIENT
  Age: 73 Year
  Sex: Male

DRUGS (5)
  1. ADALAT [Suspect]
     Indication: ESSENTIAL HYPERTENSION
     Dosage: TOTAL DAILY DOSE: 40 MG  UNIT DOSE: 20 MG
     Route: 048
     Dates: start: 20070226, end: 20070402
  2. CONIEL [Concomitant]
     Route: 048
     Dates: end: 20070226
  3. DIOVAN [Concomitant]
     Route: 048
     Dates: end: 20070402
  4. TRICHLORMETHIAZIDE [Concomitant]
     Dosage: TOTAL DAILY DOSE: 1 MG
     Route: 048
     Dates: end: 20070402
  5. RESPLEN [Concomitant]
     Route: 048
     Dates: end: 20070402

REACTIONS (1)
  - GASTRIC ULCER [None]
